FAERS Safety Report 24727051 (Version 1)
Quarter: 2024Q4

REPORT INFORMATION
  Report Type: Spontaneous
  Country: FR (occurrence: FR)
  Receive Date: 20241212
  Receipt Date: 20241212
  Transmission Date: 20250115
  Serious: Yes (Hospitalization, Other)
  Sender: BAXTER
  Company Number: None

PATIENT
  Age: 20 Year
  Sex: Male
  Weight: 67 kg

DRUGS (3)
  1. SCOPOLAMINE [Suspect]
     Active Substance: SCOPOLAMINE
     Indication: Salivary hypersecretion
     Dosage: 1 DF, EVERY 2 WEEKS, (DOSAGE TEXT: 1 DF EVERY 3 DAYS)
     Route: 062
  2. LOXAPINE [Suspect]
     Active Substance: LOXAPINE
     Indication: Autism spectrum disorder
     Dosage: LOXAPAC 50 MG, DOSE: 300 MG, ONCE DAILY (DOSAGE TEXT: 2 TABS MORNING, MIDDAY, AND EVENING)
     Route: 048
  3. ZUCLOPENTHIXOL [Suspect]
     Active Substance: ZUCLOPENTHIXOL
     Indication: Autism spectrum disorder
     Dosage: CLOPIXOL 25 MG, DOSE: 100 MG ONCE DAILY (DOSAGE TEXT: 25MG MORNING, MIDDAY, EVENING, AND BEDTIME)
     Route: 048

REACTIONS (1)
  - Faecaloma [Recovering/Resolving]

NARRATIVE: CASE EVENT DATE: 20240310
